FAERS Safety Report 7147985-0 (Version None)
Quarter: 2010Q4

REPORT INFORMATION
  Report Type: 
  Country: None (occurrence: None)
  Receive Date: 20101206
  Receipt Date: 20101206
  Transmission Date: 20110411
  Serious: Yes (Death)
  Sender: FDA-Public Use
  Company Number: None

PATIENT
  Age: 64 Year
  Sex: Female
  Weight: 67.586 kg

DRUGS (1)
  1. NITRO MAC 100MG MYLAN [Suspect]
     Indication: URINARY TRACT INFECTION
     Dosage: 100 MG DAILY PO
     Route: 048
     Dates: start: 20080502, end: 20101017

REACTIONS (5)
  - ASTHENIA [None]
  - COUGH [None]
  - INFLUENZA [None]
  - NASOPHARYNGITIS [None]
  - PULMONARY FIBROSIS [None]
